FAERS Safety Report 17042157 (Version 1)
Quarter: 2019Q4

REPORT INFORMATION
  Report Type: Spontaneous
  Country: GB (occurrence: GB)
  Receive Date: 20191118
  Receipt Date: 20191118
  Transmission Date: 20200122
  Serious: Yes (Hospitalization)
  Sender: FDA-Public Use
  Company Number: GB-ROCHE-2469214

PATIENT
  Age: 36 Year

DRUGS (5)
  1. OSELTAMIVIR [Suspect]
     Active Substance: OSELTAMIVIR
     Indication: PRODUCT USED FOR UNKNOWN INDICATION
     Dosage: FOR 5 DAYS
     Route: 065
     Dates: start: 20180124, end: 20180127
  2. BETAMETHASONE. [Concomitant]
     Active Substance: BETAMETHASONE
     Route: 065
  3. SALBUTAMOL [Concomitant]
     Active Substance: ALBUTEROL
     Dosage: 100MCG/DOSE - 1 OR 2 PUFFS UP TO 4 TIMES A DAY
     Route: 055
  4. FUSIDIC ACID [Concomitant]
     Active Substance: FUSIDIC ACID
  5. FEXOFENADINE [Concomitant]
     Active Substance: FEXOFENADINE HYDROCHLORIDE
     Route: 065

REACTIONS (3)
  - Erythema [Unknown]
  - Cellulitis [Unknown]
  - Swelling face [Unknown]

NARRATIVE: CASE EVENT DATE: 20180127
